FAERS Safety Report 6405899-5 (Version None)
Quarter: 2009Q4

REPORT INFORMATION
  Report Type: 
  Country: None (occurrence: None)
  Receive Date: 20091016
  Receipt Date: 20091016
  Transmission Date: 20100525
  Serious: Yes (Other)
  Sender: FDA-Public Use
  Company Number: None

PATIENT
  Age: 74 Year
  Sex: Female
  Weight: 88.4514 kg

DRUGS (1)
  1. TRICOR [Suspect]
     Indication: BLOOD TRIGLYCERIDES INCREASED
     Dosage: 1 TABLET 1 DAILY PO 5 PULS MONTHS
     Route: 048
     Dates: start: 20090416, end: 20091006

REACTIONS (3)
  - GLOMERULONEPHRITIS [None]
  - NEPHRITIS [None]
  - RENAL FAILURE CHRONIC [None]
